FAERS Safety Report 11368857 (Version 1)
Quarter: 2015Q3

REPORT INFORMATION
  Report Type: Spontaneous
  Country: US (occurrence: None)
  Receive Date: 20150811
  Receipt Date: 20150811
  Transmission Date: 20151125
  Serious: Yes (Other)
  Sender: FDA-Public Use
  Company Number: None

PATIENT
  Age: 73 Year
  Sex: Male
  Weight: 242 kg

DRUGS (1)
  1. METOPROLOL SUCCINATE 100 [Suspect]
     Active Substance: METOPROLOL SUCCINATE
     Indication: CARDIAC FAILURE CONGESTIVE
     Route: 048
     Dates: start: 20150809, end: 20150810

REACTIONS (1)
  - Hypotension [None]

NARRATIVE: CASE EVENT DATE: 20150810
